FAERS Safety Report 6187704-8 (Version None)
Quarter: 2009Q2

REPORT INFORMATION
  Report Type: 
  Country: None (occurrence: None)
  Receive Date: 20090513
  Receipt Date: 20090429
  Transmission Date: 20091009
  Serious: Yes (Other)
  Sender: FDA-Public Use
  Company Number: US-PFIZER INC-2006087864

PATIENT
  Sex: Female

DRUGS (8)
  1. PROVERA [Suspect]
     Indication: HORMONE REPLACEMENT THERAPY
     Dosage: 10 MG, UNK
     Route: 048
     Dates: start: 19870101, end: 19980101
  2. PROVERA [Suspect]
     Dosage: 2.5 MG, UNK
     Route: 048
     Dates: start: 19980101, end: 20000101
  3. OGEN [Suspect]
     Indication: HORMONE REPLACEMENT THERAPY
     Dosage: UNK
     Route: 048
     Dates: start: 19980101, end: 20000101
  4. PREMARIN [Suspect]
     Indication: HORMONE REPLACEMENT THERAPY
     Dosage: UNK
     Route: 065
     Dates: start: 19870101, end: 19980101
  5. CYCRIN [Suspect]
     Indication: HORMONE REPLACEMENT THERAPY
     Route: 065
  6. MEDROXYPROGESTERONE ACETATE [Suspect]
     Indication: HORMONE REPLACEMENT THERAPY
     Route: 065
  7. ESTROPIPATE [Suspect]
     Indication: HORMONE REPLACEMENT THERAPY
     Route: 065
  8. PREMPRO [Suspect]
     Indication: HORMONE REPLACEMENT THERAPY
     Route: 065

REACTIONS (1)
  - BREAST CANCER FEMALE [None]
